FAERS Safety Report 5802086-6 (Version None)
Quarter: 2008Q3

REPORT INFORMATION
  Report Type: 
  Country: None (occurrence: None)
  Receive Date: 20080702
  Receipt Date: 20080617
  Transmission Date: 20090109
  Serious: Yes (Disabling)
  Sender: FDA-Public Use
  Company Number: 2008S1011128

PATIENT
  Age: 53 Year
  Sex: Female

DRUGS (1)
  1. TAMOXI (TAMOXIFEN CITRATE) [Suspect]
     Indication: BREAST CANCER
     Dosage: ORAL
     Route: 048
     Dates: start: 20010401, end: 20040601

REACTIONS (1)
  - OPTIC NEUROPATHY [None]
